FAERS Safety Report 21723122 (Version 1)
Quarter: 2022Q4

REPORT INFORMATION
  Report Type: Spontaneous
  Country: US (occurrence: US)
  Receive Date: 20221213
  Receipt Date: 20221213
  Transmission Date: 20230113
  Serious: Yes (Life-Threatening, Other)
  Sender: FDA-Public Use
  Company Number: US-PFIZER INC-202201361185

PATIENT
  Age: 61 Year
  Sex: Female

DRUGS (1)
  1. XELJANZ [Suspect]
     Active Substance: TOFACITINIB CITRATE
     Dosage: 11 MG, DAILY
     Route: 048
     Dates: start: 20190107

REACTIONS (9)
  - Thyroid mass [Not Recovered/Not Resolved]
  - Diabetes mellitus [Not Recovered/Not Resolved]
  - Vertigo [Not Recovered/Not Resolved]
  - Nausea [Not Recovered/Not Resolved]
  - Disorientation [Not Recovered/Not Resolved]
  - Product prescribing issue [Unknown]
  - Dizziness [Unknown]
  - Road traffic accident [Unknown]
  - Microangiopathy [Unknown]

NARRATIVE: CASE EVENT DATE: 20220401
